FAERS Safety Report 5971361-7 (Version None)
Quarter: 2008Q4

REPORT INFORMATION
  Report Type: 
  Country: None (occurrence: None)
  Receive Date: 20081130
  Receipt Date: 20081121
  Transmission Date: 20090506
  Serious: Yes (Life-Threatening, Other)
  Sender: FDA-Public Use
  Company Number: JP-PFIZER INC-2008091635

PATIENT
  Sex: Male

DRUGS (10)
  1. CHAMPIX [Suspect]
     Indication: SMOKING CESSATION THERAPY
     Route: 048
     Dates: start: 20081021, end: 20081022
  2. PAXIL [Concomitant]
     Indication: BIPOLAR DISORDER
     Dates: start: 19930901
  3. RESLIN [Concomitant]
     Indication: BIPOLAR DISORDER
     Dates: start: 19880401
  4. ANAFRANIL [Concomitant]
     Indication: BIPOLAR DISORDER
     Dosage: DAILY DOSE:90MG
     Dates: start: 19880401
  5. ENALAPRIL MALEATE [Concomitant]
     Indication: BIPOLAR DISORDER
  6. TECIPUL [Concomitant]
     Indication: BIPOLAR DISORDER
     Dates: start: 19880401
  7. PEROSPIRONE HYDROCHLORIDE [Concomitant]
     Indication: BIPOLAR DISORDER
     Route: 048
     Dates: start: 19880401
  8. LEXOTAN [Concomitant]
     Indication: BIPOLAR DISORDER
     Route: 048
     Dates: start: 19880401
  9. ROHYPNOL [Concomitant]
     Indication: BIPOLAR DISORDER
     Route: 048
     Dates: start: 19880401
  10. PZC [Concomitant]
     Indication: BIPOLAR DISORDER
     Route: 048
     Dates: start: 19880401

REACTIONS (1)
  - DEPRESSIVE SYMPTOM [None]
